FAERS Safety Report 6955381-1 (Version None)
Quarter: 2010Q3

REPORT INFORMATION
  Report Type: 
  Country: None (occurrence: None)
  Receive Date: 20100830
  Receipt Date: 20100430
  Transmission Date: 20110219
  Serious: No
  Sender: FDA-Public Use
  Company Number: US-MYLANLABS-2010S1005576

PATIENT
  Age: 58 Year
  Sex: Female
  Weight: 63.5 kg

DRUGS (9)
  1. LISINOPRIL [Suspect]
     Indication: BLOOD PRESSURE INCREASED
     Route: 048
     Dates: start: 20100301, end: 20100301
  2. LISINOPRIL [Suspect]
     Route: 048
     Dates: start: 20100301
  3. AVAPRO [Suspect]
     Dates: start: 20100301, end: 20100301
  4. OMEPRAZOLE [Concomitant]
  5. EFFEXOR [Concomitant]
  6. VESICARE [Concomitant]
  7. FEMTRACE [Concomitant]
  8. IBUPROFEN [Concomitant]
  9. MULTI-VIT [Concomitant]

REACTIONS (1)
  - PRURITUS [None]
